FAERS Safety Report 5836433-6 (Version None)
Quarter: 2008Q3

REPORT INFORMATION
  Report Type: 
  Country: None (occurrence: None)
  Receive Date: 20080807
  Receipt Date: 20080728
  Transmission Date: 20090109
  Serious: Yes (Hospitalization, Other)
  Sender: FDA-Public Use
  Company Number: PHEH2006US04032

PATIENT
  Sex: Female
  Weight: 61.678 kg

DRUGS (5)
  1. ZOMETA [Suspect]
     Indication: HYPERCALCAEMIA OF MALIGNANCY
     Dosage: 4 MG MONTHLY
     Dates: start: 20030101, end: 20050501
  2. LANOXIN [Concomitant]
     Indication: CARDIOMYOPATHY
     Dosage: 0.25 MG, QD
     Route: 048
     Dates: start: 19980101
  3. CELEBREX [Concomitant]
     Dosage: 200 MG, UNK
  4. PREVACID [Concomitant]
     Dosage: 20 MG, QD
     Route: 048
  5. IBUPROFEN TABLETS [Concomitant]
     Indication: PAIN
     Dosage: 800 MG, PRN

REACTIONS (37)
  - ANXIETY [None]
  - BIOPSY BONE ABNORMAL [None]
  - BONE SCAN ABNORMAL [None]
  - CALCULUS URETERIC [None]
  - CARDIOMYOPATHY [None]
  - CELLULITIS [None]
  - CULTURE POSITIVE [None]
  - DENTAL CARIES [None]
  - DENTAL IMPLANTATION [None]
  - DYSURIA [None]
  - FISTULA [None]
  - FLANK PAIN [None]
  - GINGIVAL BLEEDING [None]
  - GINGIVAL SWELLING [None]
  - HYDRONEPHROSIS [None]
  - IMPAIRED HEALING [None]
  - INFECTION [None]
  - INFLAMMATION [None]
  - INJURY [None]
  - JAW DISORDER [None]
  - MITRAL VALVE INCOMPETENCE [None]
  - MUCOSAL ULCERATION [None]
  - NEPHROLITHIASIS [None]
  - ODONTOGENIC CYST [None]
  - ORAL DISORDER [None]
  - ORAL SURGERY [None]
  - OSTEOMYELITIS CHRONIC [None]
  - OSTEONECROSIS [None]
  - PAIN [None]
  - PERIODONTAL DISEASE [None]
  - RENAL PAIN [None]
  - SINUSITIS [None]
  - TOOTH DISORDER [None]
  - TOOTH EXTRACTION [None]
  - TRICUSPID VALVE INCOMPETENCE [None]
  - X-RAY ABNORMAL [None]
  - X-RAY DENTAL [None]
